FAERS Safety Report 5529947-X (Version None)
Quarter: 2007Q4

REPORT INFORMATION
  Report Type: 
  Country: None (occurrence: None)
  Receive Date: 20071129
  Receipt Date: 20071031
  Transmission Date: 20080405
  Serious: Yes (Death, Hospitalization)
  Sender: FDA-Public Use
  Company Number: US-BOEHRINGER INGELHEIM PHARMACEUTICALS, INC.-2007-BP-25149BP

PATIENT
  Sex: Male

DRUGS (1)
  1. MIRAPEX [Suspect]

REACTIONS (3)
  - COMPLETED SUICIDE [None]
  - HALLUCINATION [None]
  - IMPULSIVE BEHAVIOUR [None]
